FAERS Safety Report 10514322 (Version 1)
Quarter: 2014Q4

REPORT INFORMATION
  Report Type: Report from Study
  Country: CA (occurrence: CA)
  Receive Date: 20141013
  Receipt Date: 20141013
  Transmission Date: 20150528
  Serious: Yes (Death)
  Sender: FDA-Public Use
  Company Number: CA-BRISTOL-MYERS SQUIBB COMPANY-21474374

PATIENT
  Age: 75 Year
  Sex: Male

DRUGS (18)
  1. LASIX [Concomitant]
     Active Substance: FUROSEMIDE
  2. PANTOPRAZOLE [Concomitant]
     Active Substance: PANTOPRAZOLE SODIUM
  3. SPIRONOLACTONE. [Concomitant]
     Active Substance: SPIRONOLACTONE
  4. CORTISONE [Concomitant]
     Active Substance: CORTISONE\HYDROCORTISONE
  5. ALLOPURINOL. [Concomitant]
     Active Substance: ALLOPURINOL
  6. CRESTOR [Concomitant]
     Active Substance: ROSUVASTATIN CALCIUM
  7. NORTRIPTYLINE [Concomitant]
     Active Substance: NORTRIPTYLINE
  8. FINASTERIDE. [Concomitant]
     Active Substance: FINASTERIDE
  9. ORENCIA [Suspect]
     Active Substance: ABATACEPT
     Indication: RHEUMATOID ARTHRITIS
     Route: 058
     Dates: start: 20131129, end: 201403
  10. EZETROL [Concomitant]
     Active Substance: EZETIMIBE
  11. TAMSULOSIN [Concomitant]
     Active Substance: TAMSULOSIN
  12. CYMBALTA [Concomitant]
     Active Substance: DULOXETINE HYDROCHLORIDE
  13. PRADAXA [Concomitant]
     Active Substance: DABIGATRAN ETEXILATE MESYLATE
  14. DOMPERIDONE [Concomitant]
     Active Substance: DOMPERIDONE
  15. GABAPENTIN. [Concomitant]
     Active Substance: GABAPENTIN
  16. BISOPROLOL [Concomitant]
     Active Substance: BISOPROLOL
  17. PREDNISONE. [Concomitant]
     Active Substance: PREDNISONE
  18. CELEBREX [Concomitant]
     Active Substance: CELECOXIB

REACTIONS (1)
  - Death [Fatal]

NARRATIVE: CASE EVENT DATE: 20140922
